FAERS Safety Report 10090163 (Version 1)
Quarter: 2014Q2

REPORT INFORMATION
  Report Type: Spontaneous
  Country: US (occurrence: None)
  Receive Date: 20140417
  Receipt Date: 20140417
  Transmission Date: 20141212
  Serious: Yes (Other)
  Sender: FDA-Public Use
  Company Number: 2014EXPUS00180

PATIENT
  Age: 65 Year
  Sex: Male

DRUGS (1)
  1. EXPAREL [Suspect]
     Indication: POSTOPERATIVE ANALGESIA
     Dates: start: 20140408, end: 20140408

REACTIONS (3)
  - Arterial injury [None]
  - Pulse absent [None]
  - Swelling [None]
